FAERS Safety Report 25671545 (Version 1)
Quarter: 2025Q3

REPORT INFORMATION
  Report Type: Spontaneous
  Country: EU (occurrence: EU)
  Receive Date: 20250812
  Receipt Date: 20250812
  Transmission Date: 20251021
  Serious: Yes (Hospitalization, Other)
  Sender: MYLAN
  Company Number: None

PATIENT
  Age: 76 Year
  Sex: Male
  Weight: 96 kg

DRUGS (2)
  1. AMIODARONE [Suspect]
     Active Substance: AMIODARONE
     Indication: Atrial fibrillation
     Dosage: 0.5 DOSAGE FORM, QD (0.5 TABLETS DAILY)
     Dates: start: 202103, end: 20250701
  2. AMIODARONE [Suspect]
     Active Substance: AMIODARONE
     Dosage: 1 DOSAGE FORM, QD (1 TABLET DAILY)
     Dates: start: 20250701, end: 20250708

REACTIONS (2)
  - Cornea verticillata [Not Recovered/Not Resolved]
  - Interstitial lung disease [Recovering/Resolving]

NARRATIVE: CASE EVENT DATE: 20230201
